FAERS Safety Report 14686784 (Version 3)
Quarter: 2018Q2

REPORT INFORMATION
  Report Type: Spontaneous
  Country: US (occurrence: US)
  Receive Date: 20180327
  Receipt Date: 20180417
  Transmission Date: 20180711
  Serious: Yes (Death)
  Sender: FDA-Public Use
  Company Number: US-ACTELION-A-NJ2018-169510

PATIENT
  Age: 87 Year
  Sex: Female

DRUGS (2)
  1. UPTRAVI [Suspect]
     Active Substance: SELEXIPAG
     Indication: PULMONARY ARTERIAL HYPERTENSION
     Dosage: 200 MCG, BID
     Route: 048
  2. OPSUMIT [Suspect]
     Active Substance: MACITENTAN
     Indication: PULMONARY ARTERIAL HYPERTENSION
     Dosage: 10 MG, UNK
     Route: 048

REACTIONS (9)
  - General physical health deterioration [Not Recovered/Not Resolved]
  - Pulmonary hypertension [Fatal]
  - Therapy cessation [Unknown]
  - Disease progression [Fatal]
  - Chronic obstructive pulmonary disease [Unknown]
  - Therapy non-responder [Unknown]
  - Sleep apnoea syndrome [Unknown]
  - Scleroderma [Unknown]
  - Interstitial lung disease [Unknown]
